FAERS Safety Report 7253997-9 (Version None)
Quarter: 2011Q1

REPORT INFORMATION
  Report Type: 
  Country: None (occurrence: None)
  Receive Date: 20110129
  Receipt Date: 20100303
  Transmission Date: 20110831
  Serious: No
  Sender: FDA-Public Use
  Company Number: US-ABBOTT-10P-163-0630393-00

PATIENT
  Sex: Female
  Weight: 69.916 kg

DRUGS (4)
  1. FOLIC ACID [Concomitant]
     Indication: VITAMIN SUPPLEMENTATION
     Route: 048
  2. HUMIRA [Suspect]
     Route: 058
     Dates: start: 20100204
  3. METHOTREXATE [Concomitant]
     Indication: JUVENILE ARTHRITIS
     Route: 048
  4. HUMIRA [Suspect]
     Indication: JUVENILE ARTHRITIS
     Route: 058
     Dates: start: 20090301, end: 20100101

REACTIONS (5)
  - ALOPECIA [None]
  - ACNE [None]
  - RASH PUSTULAR [None]
  - PAIN OF SKIN [None]
  - FEELING HOT [None]
